FAERS Safety Report 22357227 (Version 1)
Quarter: 2023Q2

REPORT INFORMATION
  Report Type: Spontaneous
  Country: ES (occurrence: None)
  Receive Date: 20230524
  Receipt Date: 20230524
  Transmission Date: 20230722
  Serious: Yes (Death, Life-Threatening, Hospitalization, Other)
  Sender: FDA-Public Use
  Company Number: ES-MLMSERVICE-20230510-4279768-1

PATIENT
  Age: 76 Year
  Sex: Male

DRUGS (3)
  1. METHOTREXATE [Suspect]
     Active Substance: METHOTREXATE
     Indication: Eczema
  2. METAMIZOLE [Suspect]
     Active Substance: METAMIZOLE
     Indication: Back pain
     Dates: start: 202212
  3. CORTICOSTEROID NOS [Suspect]
     Active Substance: CORTICOSTEROID NOS
     Indication: Eczema

REACTIONS (5)
  - Neutropenia [Fatal]
  - Stevens-Johnson syndrome [Fatal]
  - Renal failure [Fatal]
  - Erythema multiforme [Fatal]
  - Product use in unapproved indication [Unknown]
